FAERS Safety Report 12967828 (Version 4)
Quarter: 2017Q3

REPORT INFORMATION
  Report Type: Spontaneous
  Country: US (occurrence: US)
  Receive Date: 20161123
  Receipt Date: 20170802
  Transmission Date: 20171127
  Serious: No
  Sender: FDA-Public Use
  Company Number: US-PFIZER INC-2016537473

PATIENT
  Age: 59 Year
  Sex: Female
  Weight: 49.53 kg

DRUGS (7)
  1. PENICILLIN-V /00001801/ [Suspect]
     Active Substance: PENICILLIN V
     Dosage: UNK
  2. PREMARIN [Concomitant]
     Active Substance: ESTROGENS, CONJUGATED
     Dosage: 1.25 MG, 1X/DAY
  3. VIBRAMYCIN [Suspect]
     Active Substance: DOXYCYCLINE
     Indication: CYSTITIS
     Dosage: UNK (1-10MG-2XD)
     Dates: start: 1996
  4. TERRAMYCIN [Suspect]
     Active Substance: OXYTETRACYCLINE\OXYTETRACYCLINE HYDROCHLORIDE
     Indication: SINUSITIS
     Dosage: UNK (1-10MG-2XD)
     Dates: start: 1993
  5. TETRACYCLINE HCL [Suspect]
     Active Substance: TETRACYCLINE HYDROCHLORIDE
     Indication: CYSTITIS
     Dosage: UNK (1-10MG-2XD)
     Dates: start: 1999
  6. LYRICA [Concomitant]
     Active Substance: PREGABALIN
     Dosage: 100 MG, 2X/DAY
  7. ELMIRON [Concomitant]
     Active Substance: PENTOSAN POLYSULFATE SODIUM
     Dosage: 100 MG, 3X/DAY

REACTIONS (6)
  - Urticaria [Recovered/Resolved]
  - Swollen tongue [Recovered/Resolved]
  - Drug hypersensitivity [Recovered/Resolved]
  - Headache [Not Recovered/Not Resolved]
  - Nausea [Recovered/Resolved]
  - Migraine [Unknown]
